FAERS Safety Report 8089164 (Version 4)
Quarter: 2012Q4

REPORT INFORMATION
  Report Type: 
  Country: US (occurrence: US)
  Receive Date: 20110812
  Receipt Date: 20121010
  Transmission Date: 20130627
  Serious: Yes (Hospitalization)
  Sender: FDA-Public Use
  Company Number: US-ASTRAZENECA-2010SE10611

PATIENT
  Age: 56 Year
  Sex: Female

DRUGS (5)
  1. PULMICORT RESPULES [Suspect]
     Route: 055
  2. CRESTOR [Suspect]
     Route: 048
  3. ACCOLATE [Suspect]
     Route: 048
  4. PREDNISONE [Concomitant]
  5. DUONEB [Concomitant]

REACTIONS (8)
  - Mycotic allergy [Unknown]
  - Anxiety disorder [Unknown]
  - Bronchitis [Unknown]
  - Diabetes mellitus [Unknown]
  - Depression [Unknown]
  - Respiratory disorder [Unknown]
  - Herpes zoster [Unknown]
  - Off label use [Unknown]
